FAERS Safety Report 9193461 (Version 2)
Quarter: 2013Q2

REPORT INFORMATION
  Report Type: Spontaneous
  Country: US (occurrence: None)
  Receive Date: 20120703
  Receipt Date: 20121031
  Transmission Date: 20140414
  Serious: No
  Sender: FDA-Public Use
  Company Number: PHEH2012US006646

PATIENT
  Age: 50 Year
  Sex: Female
  Weight: 58 kg

DRUGS (6)
  1. GILENYA (FTY) CAPSULE, 0.5MG [Suspect]
     Indication: MULTIPLE SCLEROSIS
     Route: 048
     Dates: start: 20120229
  2. EFEXOR ER (VENLAFAXINE HYDROCHLORIDE) [Concomitant]
  3. TRAZODONE (TRAZODONE) [Concomitant]
  4. ESTRADIOL (ESTRADIOL) (GEL) [Concomitant]
  5. TOPIRAMATE (TOPIRAMATE) [Concomitant]
  6. MULTIVITAMINS (ASCORBIC ACID, ERGOCALCIFEROL, FOLIC ACID, NICOTINAMIDE, PANTHENOL, RETINOL, RIBOFLAVIN, THIAMINE HYDROCHLORIDE) [Concomitant]

REACTIONS (9)
  - Pain [None]
  - Cough [None]
  - Mitral valve prolapse [None]
  - Concomitant disease aggravated [None]
  - Fatigue [None]
  - Quality of life decreased [None]
  - Dizziness [None]
  - Dyspnoea [None]
  - Palpitations [None]
